FAERS Safety Report 17399821 (Version 3)
Quarter: 2020Q4

REPORT INFORMATION
  Report Type: Spontaneous
  Country: US (occurrence: US)
  Receive Date: 20200211
  Receipt Date: 20201208
  Transmission Date: 20210113
  Serious: No
  Sender: FDA-Public Use
  Company Number: US-LUPIN PHARMACEUTICALS INC.-2020-00448

PATIENT
  Age: 65 Year
  Sex: Male
  Weight: 81.63 kg

DRUGS (7)
  1. PHENELZINE TABLET 15 MG [Suspect]
     Active Substance: PHENELZINE
     Indication: ANXIETY
     Dosage: 3 DOSAGE FORM, QD (3 TABLETS ONCE A DAY)
     Route: 048
  2. PHENELZINE TABLET 15 MG [Suspect]
     Active Substance: PHENELZINE
     Indication: DEPRESSION
     Dosage: 3 DOSAGE FORM, QD (3 TABLETS ONCE A DAY)
     Route: 048
     Dates: start: 20191202
  3. LOSARTAN. [Concomitant]
     Active Substance: LOSARTAN
     Indication: PRODUCT USED FOR UNKNOWN INDICATION
     Dosage: UNK
     Route: 065
  4. PHENELZINE TABLET 15 MG [Suspect]
     Active Substance: PHENELZINE
     Dosage: 15 MILLIGRAM, TID
     Route: 048
     Dates: start: 20201012
  5. ELIQUIS [Concomitant]
     Active Substance: APIXABAN
     Indication: PRODUCT USED FOR UNKNOWN INDICATION
     Dosage: UNK
     Route: 065
  6. OMEPRAZOLE. [Concomitant]
     Active Substance: OMEPRAZOLE
     Indication: PRODUCT USED FOR UNKNOWN INDICATION
     Dosage: UNK
     Route: 065
  7. ATENOLOL. [Concomitant]
     Active Substance: ATENOLOL
     Indication: PRODUCT USED FOR UNKNOWN INDICATION
     Dosage: UNK
     Route: 065

REACTIONS (5)
  - Drug ineffective [Unknown]
  - Depression [Not Recovered/Not Resolved]
  - Product quality issue [Unknown]
  - Panic attack [Not Recovered/Not Resolved]
  - Anxiety [Not Recovered/Not Resolved]

NARRATIVE: CASE EVENT DATE: 201912
